FAERS Safety Report 6679551-5 (Version None)
Quarter: 2010Q2

REPORT INFORMATION
  Report Type: 
  Country: None (occurrence: None)
  Receive Date: 20100413
  Receipt Date: 20100406
  Transmission Date: 20101027
  Serious: Yes (Hospitalization)
  Sender: FDA-Public Use
  Company Number: PHHY2010SK21659

PATIENT
  Age: 71 Year
  Sex: Male

DRUGS (3)
  1. EXELON [Suspect]
     Indication: DEMENTIA ALZHEIMER'S TYPE
     Dosage: 4.6 MG DAILY
     Route: 062
     Dates: start: 20091001, end: 20091201
  2. EXELON [Suspect]
     Dosage: 9.5 MG, QD
     Route: 062
     Dates: start: 20091201
  3. DONEPEZIL HCL [Concomitant]
     Indication: HYPNOTHERAPY
     Dosage: 5 MG ONCE DAILY

REACTIONS (3)
  - BENIGN PROSTATIC HYPERPLASIA [None]
  - BLADDER CATHETER PERMANENT [None]
  - PROSTATIC OPERATION [None]
